FAERS Safety Report 5020421-6 (Version None)
Quarter: 2006Q2

REPORT INFORMATION
  Report Type: 
  Country: None (occurrence: None)
  Receive Date: 20060602
  Receipt Date: 20060524
  Transmission Date: 20061013
  Serious: Yes (Hospitalization)
  Sender: FDA-Public Use
  Company Number: 2006-05-1831

PATIENT
  Age: 91 Year
  Sex: Male
  Weight: 78 kg

DRUGS (8)
  1. CELESTONE [Suspect]
     Indication: BRONCHITIS ACUTE
     Dosage: 6 MG QD ORAL
     Route: 048
     Dates: end: 20060425
  2. ASPIRINE CAPSULES [Suspect]
     Dosage: 1 CAP 325 MG ORAL
     Route: 048
     Dates: end: 20060425
  3. DOLIPRANE [Concomitant]
  4. PNEUMOREL [Concomitant]
  5. KETEK [Concomitant]
  6. PIASCLEDINE CAPSULES [Concomitant]
  7. FORLAX (MACROGOL) [Concomitant]
  8. ALUMINUM HYDROXIDE-MAGNESIUM CARB. GEL [Concomitant]

REACTIONS (2)
  - DIVERTICULUM INTESTINAL HAEMORRHAGIC [None]
  - HIATUS HERNIA [None]
